FAERS Safety Report 5752133-5 (Version None)
Quarter: 2008Q2

REPORT INFORMATION
  Report Type: 
  Country: None (occurrence: None)
  Receive Date: 20080528
  Receipt Date: 20080519
  Transmission Date: 20081010
  Serious: No
  Sender: FDA-Public Use
  Company Number: APP200800184

PATIENT
  Age: 73 Year
  Sex: Male

DRUGS (1)
  1. HEPARIN SODIUM INJECTION [Suspect]
     Indication: DIALYSIS
     Dosage: 10000 USP UNITS, PRE-DIALYSIS TREATMENT, VIA VASCULAR ACCESS FOR HEMODIALYSIS
     Dates: start: 20080305, end: 20080305

REACTIONS (1)
  - HAEMORRHAGE [None]
